FAERS Safety Report 11930916 (Version 1)
Quarter: 2016Q1

REPORT INFORMATION
  Report Type: Spontaneous
  Country: US (occurrence: None)
  Receive Date: 20160120
  Receipt Date: 20160120
  Transmission Date: 20160526
  Serious: Yes (Hospitalization)
  Sender: FDA-Public Use
  Company Number: None

PATIENT
  Age: 79 Year
  Sex: Male
  Weight: 83.7 kg

DRUGS (2)
  1. CASODEX [Suspect]
     Active Substance: BICALUTAMIDE
     Dates: end: 20151023
  2. LEUPROLIDE ACETATE. [Suspect]
     Active Substance: LEUPROLIDE ACETATE
     Dates: end: 20151023

REACTIONS (7)
  - Dizziness [None]
  - Fall [None]
  - Syncope [None]
  - Injury [None]
  - Haemoglobin decreased [None]
  - Haemorrhage [None]
  - Cardiac output decreased [None]

NARRATIVE: CASE EVENT DATE: 20160105
